FAERS Safety Report 10142521 (Version 2)
Quarter: 2014Q2

REPORT INFORMATION
  Report Type: Spontaneous
  Country: RU (occurrence: RU)
  Receive Date: 20140430
  Receipt Date: 20140512
  Transmission Date: 20141212
  Serious: Yes (Other)
  Sender: FDA-Public Use
  Company Number: RU-ROCHE-1390532

PATIENT
  Age: 4 Year
  Sex: Male

DRUGS (1)
  1. ACTEMRA [Suspect]
     Indication: JUVENILE IDIOPATHIC ARTHRITIS
     Dosage: LAST RECEIVED DOSE BEFORE SECOND EPISODE OF THE EVENT 23/APR/2014
     Route: 042
     Dates: start: 201402

REACTIONS (1)
  - Induration [Recovered/Resolved]
